FAERS Safety Report 9625011 (Version 2)
Quarter: 2013Q4

REPORT INFORMATION
  Report Type: Spontaneous
  Country: US (occurrence: US)
  Receive Date: 20131016
  Receipt Date: 20131017
  Transmission Date: 20140711
  Serious: No
  Sender: FDA-Public Use
  Company Number: US-009507513-1310USA005630

PATIENT
  Sex: Female

DRUGS (1)
  1. ASMANEX TWISTHALER [Suspect]
     Indication: ASTHMA
     Dosage: 220 MICROGRAM, BID;  220MCG/ONE PUFF, TWICE DAILY; STRENGTH: 220 Y
     Route: 055
     Dates: start: 2012

REACTIONS (2)
  - Drug dose omission [Unknown]
  - Product quality issue [Unknown]
